FAERS Safety Report 20443561 (Version 2)
Quarter: 2022Q2

REPORT INFORMATION
  Report Type: Spontaneous
  Country: US (occurrence: US)
  Receive Date: 20220208
  Receipt Date: 20220421
  Transmission Date: 20220721
  Serious: Yes (Other)
  Sender: FDA-Public Use
  Company Number: US-PFIZER INC-202200213215

PATIENT
  Age: 63 Year
  Sex: Male
  Weight: 81.65 kg

DRUGS (1)
  1. PAXLOVID [Suspect]
     Active Substance: NIRMATRELVIR\RITONAVIR
     Indication: COVID-19
     Dosage: PURCHASED DOSE BID
     Dates: start: 20220131, end: 20220204

REACTIONS (6)
  - Diarrhoea haemorrhagic [Unknown]
  - Rectal haemorrhage [Unknown]
  - Diarrhoea [Recovered/Resolved]
  - Flatulence [Recovered/Resolved]
  - Insomnia [Unknown]
  - Therapeutic response unexpected [Unknown]

NARRATIVE: CASE EVENT DATE: 20220131
